FAERS Safety Report 5236586-7 (Version None)
Quarter: 2007Q1

REPORT INFORMATION
  Report Type: 
  Country: None (occurrence: None)
  Receive Date: 20070208
  Receipt Date: 20070125
  Transmission Date: 20070707
  Serious: Yes (Hospitalization)
  Sender: FDA-Public Use
  Company Number: 2007-153576-NL

PATIENT
  Age: 18 Year
  Sex: Female
  Weight: 70.3 kg

DRUGS (1)
  1. NUVARING [Suspect]
     Indication: CONTRACEPTION
     Dosage: VAGINAL,  3 WEEKS IN , 1 WEEK OUT
     Dates: start: 20061020, end: 20070118

REACTIONS (7)
  - ABDOMINAL PAIN [None]
  - BACTERIA BLOOD IDENTIFIED [None]
  - BACTERIA URINE IDENTIFIED [None]
  - DYSPNOEA [None]
  - PELVIC INFLAMMATORY DISEASE [None]
  - PYREXIA [None]
  - VOMITING [None]
